FAERS Safety Report 4674821-4 (Version None)
Quarter: 2005Q2

REPORT INFORMATION
  Report Type: 
  Country: None (occurrence: None)
  Receive Date: 20050525
  Receipt Date: 20050512
  Transmission Date: 20051028
  Serious: Yes (Hospitalization)
  Sender: FDA-Public Use
  Company Number: 2005074748

PATIENT
  Age: 80 Year
  Sex: Female
  Weight: 106.5953 kg

DRUGS (6)
  1. DETROL LA [Suspect]
     Indication: HYPERTONIC BLADDER
     Dosage: ORAL
     Route: 048
     Dates: start: 20050101
  2. ANTIBIOTICS (ANTIBIOTICS) [Suspect]
     Indication: CYSTITIS
     Dates: start: 20050401
  3. PRINIVIL [Concomitant]
  4. HYDROCHLOROTHIAZIDE [Concomitant]
  5. FOSAMAX [Concomitant]
  6. PREMARIN [Concomitant]

REACTIONS (4)
  - CYSTITIS [None]
  - ECONOMIC PROBLEM [None]
  - FATIGUE [None]
  - GASTRIC DISORDER [None]
